FAERS Safety Report 11179837 (Version 2)
Quarter: 2015Q3

REPORT INFORMATION
  Report Type: Report from Study
  Country: BR (occurrence: BR)
  Receive Date: 20150611
  Receipt Date: 20150807
  Transmission Date: 20151125
  Serious: Yes (Other)
  Sender: FDA-Public Use
  Company Number: PHHY2015BR031425

PATIENT
  Sex: Female
  Weight: 59 kg

DRUGS (2)
  1. ONBREZ BREEZHALER [Suspect]
     Active Substance: INDACATEROL
     Indication: EMPHYSEMA
     Dosage: 300 UG, QD (10 DAYS)
     Route: 065
     Dates: start: 201410, end: 201412
  2. LOSARTAN. [Concomitant]
     Active Substance: LOSARTAN
     Indication: HYPERTENSION
     Dosage: 1 DF, QD
     Route: 048

REACTIONS (10)
  - Oral herpes [Recovered/Resolved]
  - Secretion discharge [Recovered/Resolved]
  - Dyspnoea [Recovered/Resolved]
  - Asthmatic crisis [Recovered/Resolved]
  - Stomatitis [Unknown]
  - Oral discomfort [Unknown]
  - Oral pain [Recovered/Resolved]
  - Oral disorder [Recovered/Resolved]
  - Oral mucosal erythema [Recovered/Resolved]
  - Aphthous ulcer [Recovered/Resolved]
